FAERS Safety Report 4702054-1 (Version None)
Quarter: 2005Q2

REPORT INFORMATION
  Report Type: 
  Country: None (occurrence: None)
  Receive Date: 20050628
  Receipt Date: 20050624
  Transmission Date: 20051028
  Serious: Yes (Other)
  Sender: FDA-Public Use
  Company Number: US-MERCK-0506USA03468

PATIENT
  Age: 60 Year
  Sex: Male

DRUGS (3)
  1. VIOXX [Suspect]
     Indication: ARTHRITIS
     Route: 048
     Dates: end: 20041001
  2. HYDROCHLOROTHIAZIDE [Concomitant]
     Route: 065
  3. LEVOXYL [Concomitant]
     Route: 065

REACTIONS (2)
  - CHEST PAIN [None]
  - MYOCARDIAL INFARCTION [None]
